FAERS Safety Report 18490853 (Version 1)
Quarter: 2020Q4

REPORT INFORMATION
  Report Type: Spontaneous
  Country: NL (occurrence: NL)
  Receive Date: 20201111
  Receipt Date: 20201111
  Transmission Date: 20210114
  Serious: Yes (Hospitalization)
  Sender: FDA-Public Use
  Company Number: NL-TEVA-2020-NL-1847105

PATIENT
  Age: 73 Year
  Sex: Male
  Weight: 85 kg

DRUGS (1)
  1. NAPROXEN - NON-CURRENT DRUG / BRAND NAME NOT SPECIFIED [Suspect]
     Active Substance: NAPROXEN
     Indication: PAIN
     Dosage: THERAPY END DATE : ASKED BUT UNKNOWN
     Route: 065
     Dates: start: 20200925

REACTIONS (3)
  - Pyrexia [Unknown]
  - Lip swelling [Recovered/Resolved]
  - Urticaria [Recovered/Resolved]

NARRATIVE: CASE EVENT DATE: 20201004
